FAERS Safety Report 5517429-0 (Version None)
Quarter: 2007Q4

REPORT INFORMATION
  Report Type: 
  Country: None (occurrence: None)
  Receive Date: 20071108
  Receipt Date: 20070530
  Transmission Date: 20080405
  Serious: Yes (Other)
  Sender: FDA-Public Use
  Company Number: 2007S1000244

PATIENT
  Age: 83 Year
  Sex: Female
  Weight: 60 kg

DRUGS (10)
  1. CUBICIN [Suspect]
     Indication: ENDOCARDITIS STAPHYLOCOCCAL
     Dosage: 6 MG/KG;Q24H;IV
     Route: 042
     Dates: start: 20070515, end: 20070523
  2. CUBICIN [Suspect]
     Indication: STAPHYLOCOCCAL BACTERAEMIA
     Dosage: 6 MG/KG;Q24H;IV
     Route: 042
     Dates: start: 20070515, end: 20070523
  3. DILTIAZEM [Concomitant]
  4. ATENOLOL [Concomitant]
  5. CLONIDINE [Concomitant]
  6. FUROSEMIDE [Concomitant]
  7. PREDNISONE [Concomitant]
  8. PANTOPRAZOLE SODIUM [Concomitant]
  9. VANCOMYCIN [Concomitant]
  10. VITAMINS [Concomitant]

REACTIONS (2)
  - ANTIMICROBIAL SUSCEPTIBILITY TEST RESISTANT [None]
  - BACTERAEMIA [None]
